FAERS Safety Report 7501783-4 (Version None)
Quarter: 2011Q2

REPORT INFORMATION
  Report Type: 
  Country: None (occurrence: None)
  Receive Date: 20110523
  Receipt Date: 20110523
  Transmission Date: 20111010
  Serious: Yes (Life-Threatening, Hospitalization, Disabling, Other)
  Sender: FDA-Public Use
  Company Number: None

PATIENT
  Age: 4 Year
  Sex: Female
  Weight: 24.9478 kg

DRUGS (1)
  1. SINGULAIR [Suspect]
     Indication: ASTHMA
     Dosage: 5MG CHEWABLE TABLET ONCE DAILY PO
     Route: 048
     Dates: start: 20110211, end: 20110520

REACTIONS (7)
  - GASTROOESOPHAGEAL REFLUX DISEASE [None]
  - SKIN HAEMORRHAGE [None]
  - FEAR [None]
  - ABDOMINAL PAIN [None]
  - ABNORMAL BEHAVIOUR [None]
  - SELF INJURIOUS BEHAVIOUR [None]
  - DERMATILLOMANIA [None]
